FAERS Safety Report 17193577 (Version 2)
Quarter: 2020Q1

REPORT INFORMATION
  Report Type: Report from Study
  Country: CA (occurrence: CA)
  Receive Date: 20191223
  Receipt Date: 20200114
  Transmission Date: 20200409
  Serious: Yes (Hospitalization)
  Sender: FDA-Public Use
  Company Number: CA-JNJFOC-20191226137

PATIENT
  Age: 67 Year
  Sex: Male

DRUGS (8)
  1. PREDNISONE. [Suspect]
     Active Substance: PREDNISONE
     Indication: PROSTATE CANCER
     Route: 048
     Dates: start: 20190604, end: 20191121
  2. LEUPROLIDE                         /00726901/ [Suspect]
     Active Substance: LEUPROLIDE
     Indication: HORMONE THERAPY
     Route: 058
     Dates: start: 20190603, end: 20190830
  3. CABAZITAXEL [Suspect]
     Active Substance: CABAZITAXEL
     Indication: CHEMOTHERAPY
  4. PEGFILGRASTIM [Suspect]
     Active Substance: PEGFILGRASTIM
     Indication: PRODUCT USED FOR UNKNOWN INDICATION
     Route: 048
     Dates: start: 20191123, end: 20191129
  5. DALTEPARIN [Concomitant]
     Active Substance: DALTEPARIN
     Indication: THROMBOSIS PROPHYLAXIS
     Dates: start: 20191122
  6. ABIRATERONE ACETATE. [Suspect]
     Active Substance: ABIRATERONE ACETATE
     Indication: PROSTATE CANCER
     Route: 048
     Dates: start: 20190604, end: 20191121
  7. CABAZITAXEL [Suspect]
     Active Substance: CABAZITAXEL
     Indication: PROSTATE CANCER
     Dosage: FOR 6 CYCLES
     Route: 042
     Dates: start: 20190618, end: 20190917
  8. ACETAMINOFEN TRAMADOL [Concomitant]
     Active Substance: ACETAMINOPHEN\TRAMADOL HYDROCHLORIDE
     Indication: PROCEDURAL PAIN
     Dosage: 325 MG-37.5 MG
     Dates: start: 20191123

REACTIONS (1)
  - Abdominal distension [Recovered/Resolved]

NARRATIVE: CASE EVENT DATE: 20191201
